FAERS Safety Report 6706307-7 (Version None)
Quarter: 2010Q2

REPORT INFORMATION
  Report Type: 
  Country: None (occurrence: None)
  Receive Date: 20100503
  Receipt Date: 20100429
  Transmission Date: 20101027
  Serious: Yes (Life-Threatening)
  Sender: FDA-Public Use
  Company Number: GB-WYE-G06056310

PATIENT
  Age: 70 Year
  Sex: Male
  Weight: 112 kg

DRUGS (10)
  1. TAZOCIN [Suspect]
     Indication: CELLULITIS
     Route: 042
     Dates: start: 20100323, end: 20100324
  2. BENZYLPENICILLIN [Concomitant]
     Indication: CELLULITIS
     Route: 042
     Dates: start: 20100311, end: 20100323
  3. DOXAZOSIN [Concomitant]
     Indication: HYPERTENSION
     Route: 048
  4. TINZAPARIN SODIUM [Concomitant]
     Indication: THROMBOSIS PROPHYLAXIS
     Route: 058
     Dates: start: 20100312
  5. LEVOTHYROXINE [Concomitant]
     Indication: HYPERTHYROIDISM
     Route: 048
  6. LISINOPRIL [Concomitant]
     Indication: HYPERTENSION
     Route: 048
  7. SANDO K [Concomitant]
     Indication: BLOOD POTASSIUM DECREASED
     Route: 048
     Dates: start: 20100311, end: 20100323
  8. SIMVASTATIN [Concomitant]
     Indication: HYPERCHOLESTEROLAEMIA
     Route: 048
     Dates: end: 20100311
  9. BENDROFLUMETHIAZIDE [Concomitant]
     Indication: HYPERTENSION
     Route: 048
     Dates: end: 20100311
  10. FLOXACILLIN SODIUM [Concomitant]
     Indication: CELLULITIS
     Route: 042
     Dates: start: 20100311, end: 20100323

REACTIONS (1)
  - LARYNGEAL OEDEMA [None]
